FAERS Safety Report 7373145-4 (Version None)
Quarter: 2011Q1

REPORT INFORMATION
  Report Type: 
  Country: None (occurrence: None)
  Receive Date: 20110324
  Receipt Date: 20110321
  Transmission Date: 20110831
  Serious: Yes (Other)
  Sender: FDA-Public Use
  Company Number: GB-PFIZER INC-2011045471

PATIENT
  Age: 76 Year
  Sex: Female
  Weight: 115 kg

DRUGS (19)
  1. TIOTROPIUM BROMIDE [Concomitant]
     Dosage: UNK
     Dates: start: 20100108, end: 20110109
  2. TRAVOPROST [Concomitant]
     Dosage: UNK
     Dates: start: 20091201
  3. CALCICHEW-D3 [Concomitant]
     Dosage: UNK
     Dates: start: 20101207, end: 20110104
  4. VERAPAMIL [Concomitant]
     Dosage: UNK
     Dates: start: 20100108, end: 20110109
  5. LOFEPRAMINE [Concomitant]
     Dosage: UNK
     Dates: start: 20101001, end: 20110201
  6. PILOCARPINE [Concomitant]
     Dosage: UNK
     Dates: start: 20101207, end: 20110104
  7. SPIRONOLACTONE [Suspect]
     Dosage: UNK
     Dates: start: 20110218
  8. FUROSEMIDE [Concomitant]
     Dosage: UNK
     Dates: start: 20101001
  9. DEPO-MEDROL [Concomitant]
     Dosage: UNK
     Dates: start: 20110127, end: 20110217
  10. SALMETEROL [Concomitant]
     Dosage: UNK
     Dates: start: 20091201, end: 20110109
  11. SENNA [Concomitant]
     Dosage: UNK
     Dates: start: 20101207, end: 20110104
  12. VALSARTAN [Concomitant]
     Dosage: UNK
     Dates: start: 20100901
  13. ZOPICLONE [Concomitant]
     Dosage: UNK
     Dates: start: 20101105
  14. BETAMETHASONE [Concomitant]
     Dosage: UNK
     Dates: start: 20101207, end: 20110104
  15. ACETAMINOPHEN AND CODEINE PHOSPHATE [Concomitant]
     Dosage: UNK
     Dates: start: 20101207, end: 20110209
  16. MACROGOL [Concomitant]
     Dosage: UNK
     Dates: start: 20101122, end: 20101222
  17. GLYCEROL [Concomitant]
     Dosage: UNK
     Dates: start: 20101123, end: 20101205
  18. OLANZAPINE [Concomitant]
     Dosage: UNK
     Dates: start: 20101207, end: 20110201
  19. SALBUTAMOL [Concomitant]
     Dosage: UNK
     Dates: start: 20101001

REACTIONS (1)
  - GLOMERULAR FILTRATION RATE DECREASED [None]
